FAERS Safety Report 11651744 (Version 3)
Quarter: 2015Q4

REPORT INFORMATION
  Report Type: Spontaneous
  Country: SE (occurrence: SE)
  Receive Date: 20151022
  Receipt Date: 20151216
  Transmission Date: 20160304
  Serious: Yes (Hospitalization)
  Sender: FDA-Public Use
  Company Number: SE-ASTRAZENECA-2015SF01450

PATIENT
  Age: 77 Year
  Sex: Female

DRUGS (14)
  1. LOSARTAN. [Concomitant]
     Active Substance: LOSARTAN
  2. BEHEPAN [Concomitant]
     Active Substance: HYDROXOCOBALAMIN
  3. LIPITOR [Concomitant]
     Active Substance: ATORVASTATIN CALCIUM
  4. PREDNISOLONE. [Concomitant]
     Active Substance: PREDNISOLONE
  5. ETALPHA [Concomitant]
     Active Substance: ALFACALCIDOL
  6. FURIX [Concomitant]
     Active Substance: FUROSEMIDE
  7. TEGRETOL [Concomitant]
     Active Substance: CARBAMAZEPINE
  8. VANCOMYCIN [Concomitant]
     Active Substance: VANCOMYCIN
  9. FOLACIN [Concomitant]
     Active Substance: FOLIC ACID
  10. MERONEM [Suspect]
     Active Substance: MEROPENEM
     Indication: DEVICE RELATED INFECTION
     Dosage: 500 MG  X 2 IV
     Route: 042
     Dates: start: 20120324, end: 20120423
  11. KALCIDON [Concomitant]
     Active Substance: CALCIUM CARBONATE
  12. FELODIPINE. [Concomitant]
     Active Substance: FELODIPINE
  13. ALLOPURINOL. [Concomitant]
     Active Substance: ALLOPURINOL
  14. FRAGMIN [Concomitant]
     Active Substance: DALTEPARIN SODIUM

REACTIONS (1)
  - Dermatitis [Unknown]

NARRATIVE: CASE EVENT DATE: 20120329
